FAERS Safety Report 9261804 (Version 1)
Quarter: 2013Q2

REPORT INFORMATION
  Report Type: Spontaneous
  Country: US (occurrence: US)
  Receive Date: 20130429
  Receipt Date: 20130429
  Transmission Date: 20140414
  Serious: Yes (Other)
  Sender: FDA-Public Use
  Company Number: CHPA2013US006577

PATIENT
  Sex: Male

DRUGS (2)
  1. EXCEDRIN UNKNOWN [Suspect]
     Dosage: UNK, UNK
     Route: 048
  2. GAS-X UNKNOWN [Suspect]
     Dosage: UNK, UNK
     Route: 048

REACTIONS (5)
  - Ligament rupture [Unknown]
  - Cartilage injury [Unknown]
  - Exostosis [Unknown]
  - Arthritis [Unknown]
  - Pain [Unknown]
